FAERS Safety Report 10696347 (Version 2)
Quarter: 2015Q1

REPORT INFORMATION
  Report Type: Report from Study
  Country: CA (occurrence: CA)
  Receive Date: 20150107
  Receipt Date: 20150205
  Transmission Date: 20150721
  Serious: No
  Sender: FDA-Public Use
  Company Number: CA-BIOMARINAP-CA-2014-105128

PATIENT
  Age: 17 Year
  Sex: Female
  Weight: 60 kg

DRUGS (1)
  1. ALDURAZYME [Suspect]
     Active Substance: LARONIDASE
     Indication: MUCOPOLYSACCHARIDOSIS I
     Dosage: 0.58 MG/KG, UNK
     Route: 041
     Dates: start: 2004

REACTIONS (8)
  - Deafness [Recovered/Resolved]
  - Pallor [Recovered/Resolved]
  - Presyncope [Unknown]
  - Malaise [Recovered/Resolved]
  - Device malfunction [None]
  - Eructation [Recovered/Resolved]
  - Pulse abnormal [Recovered/Resolved]
  - Tinnitus [Recovered/Resolved]
